FAERS Safety Report 9834450 (Version 2)
Quarter: 2014Q3

REPORT INFORMATION
  Report Type: Spontaneous
  Country: US (occurrence: US)
  Receive Date: 20140122
  Receipt Date: 20140822
  Transmission Date: 20150326
  Serious: Yes (Hospitalization, Other)
  Sender: FDA-Public Use
  Company Number: US-009507513-1401USA009336

PATIENT
  Sex: Female

DRUGS (2)
  1. NUVARING [Suspect]
     Active Substance: ETHINYL ESTRADIOL\ETONOGESTREL
     Indication: BLOOD OESTROGEN DECREASED
  2. NUVARING [Suspect]
     Active Substance: ETHINYL ESTRADIOL\ETONOGESTREL
     Indication: MENSTRUAL DISORDER
     Dosage: UNK
     Route: 067
     Dates: start: 20110907, end: 201110

REACTIONS (10)
  - Ovarian cyst [Unknown]
  - Anticoagulation drug level below therapeutic [Unknown]
  - Vulva cyst [Unknown]
  - Contusion [Unknown]
  - Hypoaesthesia [Unknown]
  - Adverse event [Unknown]
  - Muscular weakness [Unknown]
  - Pulmonary embolism [Unknown]
  - Deep vein thrombosis [Unknown]
  - Off label use [Unknown]

NARRATIVE: CASE EVENT DATE: 201110
